FAERS Safety Report 23135171 (Version 1)
Quarter: 2023Q4

REPORT INFORMATION
  Report Type: Spontaneous
  Country: US (occurrence: US)
  Receive Date: 20231101
  Receipt Date: 20231101
  Transmission Date: 20240110
  Serious: No
  Sender: FDA-Public Use
  Company Number: US-GE HEALTHCARE-2023CSU006957

PATIENT
  Age: 24 Year
  Sex: Female

DRUGS (2)
  1. OMNIPAQUE [Suspect]
     Active Substance: IOHEXOL
     Indication: Urogram
     Dosage: 150 ML, SINGLE
     Route: 042
     Dates: start: 20230816, end: 20230816
  2. OMNIPAQUE [Suspect]
     Active Substance: IOHEXOL
     Indication: Haematuria

REACTIONS (4)
  - Pharyngeal paraesthesia [Recovered/Resolved]
  - Paraesthesia oral [Recovered/Resolved]
  - Throat irritation [Recovered/Resolved]
  - Lip pruritus [Recovered/Resolved]

NARRATIVE: CASE EVENT DATE: 20230816
